FAERS Safety Report 7776239-4 (Version None)
Quarter: 2011Q3

REPORT INFORMATION
  Report Type: 
  Country: None (occurrence: None)
  Receive Date: 20110926
  Receipt Date: 20110921
  Transmission Date: 20111222
  Serious: No
  Sender: FDA-Public Use
  Company Number: US-PFIZER INC-2011225099

PATIENT
  Sex: Female
  Weight: 54.422 kg

DRUGS (1)
  1. MEDROXYPROGESTERONE ACETATE [Suspect]
     Indication: CONTRACEPTION
     Dosage: 150 MG, ONCE IN EVERY 3 MONTH
     Dates: start: 20110101

REACTIONS (1)
  - INCORRECT DOSE ADMINISTERED [None]
